FAERS Safety Report 12851705 (Version 1)
Quarter: 2016Q4

REPORT INFORMATION
  Report Type: Spontaneous
  Country: US (occurrence: US)
  Receive Date: 20161014
  Receipt Date: 20161014
  Transmission Date: 20170207
  Serious: No
  Sender: FDA-Public Use
  Company Number: None

PATIENT
  Age: 53 Year
  Sex: Female

DRUGS (1)
  1. BOTOX [Suspect]
     Active Substance: ONABOTULINUMTOXINA
     Indication: MIGRAINE
     Dosage: 200 UNITS ONCE I.M
     Route: 030
     Dates: start: 201607

REACTIONS (2)
  - Cerebrovascular accident [None]
  - Facial paralysis [None]

NARRATIVE: CASE EVENT DATE: 20161014
